FAERS Safety Report 17781763 (Version 1)
Quarter: 2020Q2

REPORT INFORMATION
  Report Type: Spontaneous
  Country: US (occurrence: US)
  Receive Date: 20200514
  Receipt Date: 20200514
  Transmission Date: 20200714
  Serious: No
  Sender: FDA-Public Use
  Company Number: US-GALDERMA-US2020018421

PATIENT
  Age: 12 Year
  Sex: Female

DRUGS (3)
  1. PROACTIV REPAIRING CONCEALER 2 BLENDABLE SHADES [Concomitant]
     Indication: ACNE
     Route: 061
     Dates: start: 2020, end: 2020
  2. PROACTIV MD ADAPALENE ACNE TREATMENT [Suspect]
     Active Substance: ADAPALENE
     Indication: ACNE
     Dosage: 0.1%
     Route: 061
     Dates: start: 2020, end: 2020
  3. PROACTIV MOISTURE REPAIR [Concomitant]
     Active Substance: COSMETICS
     Indication: ACNE
     Route: 061
     Dates: start: 2020, end: 2020

REACTIONS (3)
  - Skin burning sensation [Recovered/Resolved]
  - Product use issue [Recovered/Resolved]
  - Skin discolouration [Recovered/Resolved]

NARRATIVE: CASE EVENT DATE: 2020
